FAERS Safety Report 13905910 (Version 1)
Quarter: 2017Q3

REPORT INFORMATION
  Report Type: Spontaneous
  Country: US (occurrence: US)
  Receive Date: 20170825
  Receipt Date: 20170825
  Transmission Date: 20171127
  Serious: No
  Sender: FDA-Public Use
  Company Number: None

PATIENT
  Sex: Female
  Weight: 75.6 kg

DRUGS (1)
  1. KETAMINE [Suspect]
     Active Substance: KETAMINE
     Indication: ARTHRALGIA
     Route: 030
     Dates: start: 20150328, end: 20151119

REACTIONS (3)
  - Pain of skin [None]
  - Skin infection [None]
  - Skin atrophy [None]

NARRATIVE: CASE EVENT DATE: 20150318
